FAERS Safety Report 6456572-9 (Version None)
Quarter: 2009Q4

REPORT INFORMATION
  Report Type: 
  Country: None (occurrence: None)
  Receive Date: 20091124
  Receipt Date: 20091124
  Transmission Date: 20100525
  Serious: Yes (Hospitalization)
  Sender: FDA-Public Use
  Company Number: None

PATIENT
  Sex: Male
  Weight: 88.4514 kg

DRUGS (1)
  1. ZOLPIDEM TARTRATE [Suspect]
     Indication: INSOMNIA
     Dosage: 5 MG

REACTIONS (4)
  - HYPERPHAGIA [None]
  - INCORRECT DOSE ADMINISTERED [None]
  - SOMNAMBULISM [None]
  - UNRESPONSIVE TO STIMULI [None]
